FAERS Safety Report 4514112-5 (Version None)
Quarter: 2004Q4

REPORT INFORMATION
  Report Type: 
  Country: None (occurrence: None)
  Receive Date: 20041124
  Receipt Date: 20041112
  Transmission Date: 20050328
  Serious: Yes (Other)
  Sender: FDA-Public Use
  Company Number: 2004093749

PATIENT
  Sex: Female
  Weight: 65.7716 kg

DRUGS (5)
  1. NICOTINE [Suspect]
     Indication: SMOKING CESSATION THERAPY
     Dosage: 1 PATCH DAILY PRN, TRANSDERMAL
     Route: 062
  2. ROFECOXIB [Suspect]
     Dosage: ORAL
     Route: 048
  3. SALBUTAMOL (SALBUTAMOL) [Concomitant]
  4. FLUTICASONE PROPIONATE [Concomitant]
  5. IPRATROPIUM BROMIDE [Concomitant]

REACTIONS (1)
  - CEREBROVASCULAR ACCIDENT [None]
